FAERS Safety Report 7321851-X (Version None)
Quarter: 2011Q1

REPORT INFORMATION
  Report Type: 
  Country: None (occurrence: None)
  Receive Date: 20110228
  Receipt Date: 20110215
  Transmission Date: 20110831
  Serious: Yes (Other)
  Sender: FDA-Public Use
  Company Number: PHHY2011AT12215

PATIENT
  Age: 32 Year
  Sex: Female

DRUGS (1)
  1. BIOCEF [Suspect]
     Indication: BRONCHITIS BACTERIAL
     Dosage: 200 MG, BID
     Dates: start: 20110107, end: 20110114

REACTIONS (1)
  - BLEPHAROSPASM [None]
